FAERS Safety Report 5664304-7 (Version None)
Quarter: 2008Q1

REPORT INFORMATION
  Report Type: 
  Country: None (occurrence: None)
  Receive Date: 20080312
  Receipt Date: 20080306
  Transmission Date: 20080703
  Serious: Yes (Other)
  Sender: FDA-Public Use
  Company Number: 18624

PATIENT
  Age: 68 Year
  Sex: Female
  Weight: 70.9879 kg

DRUGS (2)
  1. CARBOPLATIN [Suspect]
     Indication: OVARIAN CANCER RECURRENT
     Dosage: 250 MG Q21DAYS IV
     Route: 042
  2. GEMZAR [Concomitant]

REACTIONS (6)
  - COUGH [None]
  - FLUSHING [None]
  - LOCAL SWELLING [None]
  - NAUSEA [None]
  - PHARYNGEAL OEDEMA [None]
  - SWELLING FACE [None]
